FAERS Safety Report 7077555 (Version 2)
Quarter: 2014Q3

REPORT INFORMATION
  Report Type: Spontaneous
  Country: US (occurrence: None)
  Receive Date: 20090803
  Receipt Date: 20140812
  Transmission Date: 20150326
  Serious: Yes (Other)
  Sender: FDA-Public Use
  Company Number: 2009S1005802

PATIENT
  Age: 84 Year
  Sex: Male

DRUGS (4)
  1. DIOVAN/HYDROCHLOROTHIAZIDE (HYDROCHLOROTHIAZINE, VALSARTAN)? [Concomitant]
  2. PHOSPHO-SODA [Suspect]
     Active Substance: SODIUM PHOSPHATE, DIBASIC\SODIUM PHOSPHATE, MONOBASIC
     Indication: COLONOSCOPY
     Dosage: PO
     Route: 048
     Dates: start: 20080923, end: 20080923
  3. ZEBETA [Concomitant]
     Active Substance: BISOPROLOL FUMARATE
  4. FLEET [Suspect]
     Active Substance: BISACODYL\GLYCERIN\MINERAL OIL\SODIUM PHOSPHATE, DIBASIC\SODIUM PHOSPHATE, MONOBASIC
     Indication: COLONOSCOPY
     Route: 054
     Dates: start: 20080924, end: 20080924

REACTIONS (4)
  - Anaemia [None]
  - Urinary tract infection [None]
  - Renal failure chronic [None]
  - Iron deficiency anaemia [None]

NARRATIVE: CASE EVENT DATE: 2008
